FAERS Safety Report 9637494 (Version 2)
Quarter: 2013Q4

REPORT INFORMATION
  Report Type: Spontaneous
  Country: BR (occurrence: BR)
  Receive Date: 20131022
  Receipt Date: 20131223
  Transmission Date: 20140711
  Serious: Yes (Hospitalization)
  Sender: FDA-Public Use
  Company Number: BR-JNJFOC-20131011709

PATIENT
  Age: 53 Year
  Sex: Female

DRUGS (4)
  1. XARELTO [Suspect]
     Indication: ANTIPHOSPHOLIPID SYNDROME
     Route: 048
  2. XARELTO [Suspect]
     Indication: ANTIPHOSPHOLIPID SYNDROME
     Route: 048
  3. XARELTO [Suspect]
     Indication: THROMBOSIS PROPHYLAXIS
     Route: 048
  4. XARELTO [Suspect]
     Indication: THROMBOSIS PROPHYLAXIS
     Route: 048

REACTIONS (4)
  - Pulmonary embolism [Recovered/Resolved]
  - Incorrect dose administered [Unknown]
  - Off label use [Unknown]
  - Overdose [Unknown]
